FAERS Safety Report 11542761 (Version 1)
Quarter: 2015Q3

REPORT INFORMATION
  Report Type: Report from Study
  Country: AU (occurrence: AU)
  Receive Date: 20150923
  Receipt Date: 20150923
  Transmission Date: 20151125
  Serious: Yes (Hospitalization, Other)
  Sender: FDA-Public Use
  Company Number: AU-GILEAD-2015-0167895

PATIENT
  Age: 55 Year
  Sex: Female

DRUGS (9)
  1. COLOXYL WITH SENNA [Concomitant]
     Active Substance: DOCUSATE\SENNOSIDES
     Indication: CONSTIPATION
     Dosage: UNK
     Route: 048
     Dates: start: 201304
  2. PANTOPRAZOLE [Concomitant]
     Active Substance: PANTOPRAZOLE SODIUM
     Indication: GASTROOESOPHAGEAL REFLUX DISEASE
     Dosage: UNK
     Route: 048
     Dates: start: 20140815
  3. BENDAMUSTINE [Suspect]
     Active Substance: BENDAMUSTINE
     Indication: NON-HODGKIN^S LYMPHOMA UNSPECIFIED HISTOLOGY INDOLENT
     Dosage: 60 MG, CYCLICAL
     Route: 042
     Dates: start: 20140407, end: 20140910
  4. MAGNESIUM [Concomitant]
     Active Substance: MAGNESIUM
     Indication: HYPOMAGNESAEMIA
     Dosage: UNK
     Route: 048
     Dates: start: 20140620
  5. OXYCONTIN [Concomitant]
     Active Substance: OXYCODONE HYDROCHLORIDE
     Indication: SPINAL COLUMN INJURY
     Dosage: UNK
     Route: 048
     Dates: start: 2000
  6. RITUXIMAB [Suspect]
     Active Substance: RITUXIMAB
     Indication: NON-HODGKIN^S LYMPHOMA UNSPECIFIED HISTOLOGY INDOLENT
     Dosage: 375 MG, CYCLICAL
     Route: 042
     Dates: start: 20140407, end: 20140909
  7. ACTILAX                            /00163401/ [Concomitant]
     Active Substance: LACTULOSE
     Indication: CONSTIPATION
     Dosage: UNK
     Route: 048
     Dates: start: 2007
  8. PANADOL [Concomitant]
     Active Substance: ACETAMINOPHEN
     Indication: SPINAL COLUMN INJURY
     Dosage: UNK
     Route: 048
     Dates: start: 2013
  9. IDELALISIB [Suspect]
     Active Substance: IDELALISIB
     Indication: NON-HODGKIN^S LYMPHOMA UNSPECIFIED HISTOLOGY INDOLENT
     Dosage: 100 MG, BID
     Route: 048
     Dates: start: 20140709, end: 20150429

REACTIONS (3)
  - Febrile neutropenia [Recovered/Resolved]
  - Streptococcal bacteraemia [Recovered/Resolved]
  - Acute kidney injury [Recovered/Resolved]

NARRATIVE: CASE EVENT DATE: 20150813
